FAERS Safety Report 7949938-9 (Version None)
Quarter: 2011Q4

REPORT INFORMATION
  Report Type: 
  Country: None (occurrence: None)
  Receive Date: 20111123
  Receipt Date: 20111110
  Transmission Date: 20120403
  Serious: Yes (Death, Hospitalization)
  Sender: FDA-Public Use
  Company Number: 2011S1023782

PATIENT
  Age: 80 Year
  Sex: Male
  Weight: 83.9154 kg

DRUGS (25)
  1. CALCIUM [Concomitant]
  2. CARAFATE [Concomitant]
  3. CELEBREX [Concomitant]
  4. ALLOPURINOL [Concomitant]
  5. PROTONIX [Concomitant]
  6. TYLENOL W/ CODEINE [Concomitant]
  7. METOLAZONE [Concomitant]
  8. LISINOPRIL [Concomitant]
  9. METHOTREXATE [Concomitant]
  10. PROCRIT /00909301/ [Concomitant]
  11. HYDROCHLOROTHIAZIDE [Concomitant]
  12. IBUPROFEN [Concomitant]
  13. INDOMETHACIN [Concomitant]
  14. VITAMIN B-12 [Concomitant]
  15. FLOMAX [Concomitant]
  16. FUROSEMIDE [Concomitant]
  17. IRON [Concomitant]
  18. POTASSIUM CHLORIDE [Concomitant]
  19. DIGITEK (DIGOXIN) TABLETS (0.25 MG) [Suspect]
     Indication: ATRIAL FIBRILLATION
     Dosage: 0.25 MG;DAILY;ORAL ; 0.25 MG;DAILY,ORAL
     Route: 048
     Dates: end: 20080416
  20. DIGITEK (DIGOXIN) TABLETS (0.25 MG) [Suspect]
     Indication: ATRIAL FIBRILLATION
     Dosage: 0.25 MG;DAILY;ORAL ; 0.25 MG;DAILY,ORAL
     Route: 048
     Dates: start: 20080419, end: 20080420
  21. AMBIEN [Concomitant]
  22. ASPIRIN [Concomitant]
  23. PERCOCET [Concomitant]
  24. PLAQUENIL [Concomitant]
  25. PREDNISONE TAB [Concomitant]

REACTIONS (5)
  - GASTRIC ULCER [None]
  - DIVERTICULUM INTESTINAL [None]
  - MYOCARDIAL INFARCTION [None]
  - GASTROINTESTINAL HAEMORRHAGE [None]
  - CARDIOMEGALY [None]
